FAERS Safety Report 4506682-8 (Version None)
Quarter: 2004Q4

REPORT INFORMATION
  Report Type: 
  Country: None (occurrence: None)
  Receive Date: 20041117
  Receipt Date: 20041109
  Transmission Date: 20050328
  Serious: Yes (Life-Threatening, Hospitalization)
  Sender: FDA-Public Use
  Company Number: PHHO2004US15856

PATIENT
  Age: 89 Year
  Sex: Male

DRUGS (9)
  1. VISUDYNE [Suspect]
     Indication: MACULAR DEGENERATION
  2. CONTRAST MEDIA [Suspect]
     Indication: CATHETERISATION CARDIAC
     Dates: start: 20041025, end: 20041025
  3. GLUCOTROL [Concomitant]
  4. SELOKEN/TOPROL [Concomitant]
  5. AVAPRO [Concomitant]
  6. ELAVIL/ENDEP [Concomitant]
  7. PLAVIX [Concomitant]
  8. CELEBREX [Concomitant]
  9. CARDURA [Concomitant]

REACTIONS (16)
  - BLOOD CREATININE INCREASED [None]
  - CARDIOVASCULAR DISORDER [None]
  - CONTRAST MEDIA REACTION [None]
  - CORONARY ARTERY DISEASE [None]
  - CORONARY ARTERY STENOSIS [None]
  - DYSPNOEA [None]
  - ELECTROCARDIOGRAM Q WAVE ABNORMAL [None]
  - ELECTROCARDIOGRAM ST SEGMENT ELEVATION [None]
  - ENTEROCOCCAL INFECTION [None]
  - HYPERTENSION [None]
  - HYPOAESTHESIA [None]
  - HYPOKINESIA [None]
  - MYOCARDIAL INFARCTION [None]
  - NAUSEA [None]
  - STRESS SYMPTOMS [None]
  - VASCULAR STENOSIS [None]
